FAERS Safety Report 13871097 (Version 2)
Quarter: 2017Q3

REPORT INFORMATION
  Report Type: Spontaneous
  Country: US (occurrence: US)
  Receive Date: 20170816
  Receipt Date: 20170817
  Transmission Date: 20171127
  Serious: No
  Sender: FDA-Public Use
  Company Number: US-GLAXOSMITHKLINE-US2017126294

PATIENT
  Sex: Male

DRUGS (19)
  1. ANORO ELLIPTA [Suspect]
     Active Substance: UMECLIDINIUM BROMIDE\VILANTEROL TRIFENATATE
     Indication: CHRONIC OBSTRUCTIVE PULMONARY DISEASE
     Dosage: 1 PUFF(S), QD
     Route: 055
     Dates: start: 20170801, end: 20170810
  2. PRADAXA [Concomitant]
     Active Substance: DABIGATRAN ETEXILATE MESYLATE
  3. MAGNESIUM OXIDE. [Concomitant]
     Active Substance: MAGNESIUM OXIDE
  4. PROMETHAZINE COUGH SYRUP [Concomitant]
     Active Substance: PROMETHAZINE\PROMETHAZINE HYDROCHLORIDE
  5. TIMOLOL. [Concomitant]
     Active Substance: TIMOLOL
  6. ATENOLOL. [Concomitant]
     Active Substance: ATENOLOL
  7. FUROSEMIDE. [Concomitant]
     Active Substance: FUROSEMIDE
  8. ASPIRIN. [Concomitant]
     Active Substance: ASPIRIN
  9. OMEPRAZOLE. [Concomitant]
     Active Substance: OMEPRAZOLE
  10. TAMSULOSIN [Concomitant]
     Active Substance: TAMSULOSIN
  11. ALBUTEROL. [Concomitant]
     Active Substance: ALBUTEROL
  12. GABAPENTIN. [Concomitant]
     Active Substance: GABAPENTIN
  13. ISOSORBIDE. [Concomitant]
     Active Substance: ISOSORBIDE
  14. BUDESONIDE. [Concomitant]
     Active Substance: BUDESONIDE
  15. AMLODIPINE [Concomitant]
     Active Substance: AMLODIPINE BESYLATE
  16. DIGOXIN. [Concomitant]
     Active Substance: DIGOXIN
  17. LOVASTATIN. [Concomitant]
     Active Substance: LOVASTATIN
  18. MUCUS RELIEF [Concomitant]
     Active Substance: GUAIFENESIN
  19. PERFOROMIST [Concomitant]
     Active Substance: FORMOTEROL FUMARATE DIHYDRATE

REACTIONS (2)
  - Pollakiuria [Not Recovered/Not Resolved]
  - Urine flow decreased [Not Recovered/Not Resolved]
